FAERS Safety Report 10189876 (Version 1)
Quarter: 2014Q2

REPORT INFORMATION
  Report Type: Spontaneous
  Country: AU (occurrence: AU)
  Receive Date: 20140522
  Receipt Date: 20140522
  Transmission Date: 20141212
  Serious: Yes (Other)
  Sender: FDA-Public Use
  Company Number: AU-MYLANLABS-2014S1010853

PATIENT
  Age: 67 Year
  Sex: Male

DRUGS (2)
  1. ALEPAM (OXAZEPAM) [Suspect]
     Indication: PANIC ATTACK
  2. VALPRO [Suspect]
     Indication: PANIC ATTACK

REACTIONS (9)
  - Vision blurred [Not Recovered/Not Resolved]
  - Dependence [Not Recovered/Not Resolved]
  - Dizziness [Not Recovered/Not Resolved]
  - Somnolence [Not Recovered/Not Resolved]
  - Hypoaesthesia [Not Recovered/Not Resolved]
  - Drug withdrawal syndrome [Recovered/Resolved]
  - Nausea [Recovered/Resolved]
  - Dyspnoea [Recovered/Resolved]
  - Malaise [Recovered/Resolved]
